FAERS Safety Report 8098202-9 (Version None)
Quarter: 2012Q1

REPORT INFORMATION
  Report Type: 
  Country: None (occurrence: None)
  Receive Date: 20120128
  Receipt Date: 20110809
  Transmission Date: 20120608
  Serious: No
  Sender: FDA-Public Use
  Company Number: US-ABBOTT-11P-163-0845184-00

PATIENT
  Sex: Female
  Weight: 122.58 kg

DRUGS (6)
  1. GLUCOSAMINE [Concomitant]
     Indication: ILL-DEFINED DISORDER
  2. HUMIRA [Suspect]
     Indication: RHEUMATOID ARTHRITIS
     Dates: start: 20110805
  3. METHOTREXATE [Concomitant]
     Indication: RHEUMATOID ARTHRITIS
  4. ZANTAC [Concomitant]
     Indication: HIATUS HERNIA
  5. VITAMIN D [Concomitant]
     Indication: VITAMIN SUPPLEMENTATION
  6. VITAMIN B-12 [Concomitant]
     Indication: VITAMIN SUPPLEMENTATION

REACTIONS (3)
  - SWELLING [None]
  - ERYTHEMA [None]
  - BURNING SENSATION [None]
